FAERS Safety Report 18675177 (Version 1)
Quarter: 2020Q4

REPORT INFORMATION
  Report Type: Spontaneous
  Country: US (occurrence: US)
  Receive Date: 20201228
  Receipt Date: 20201228
  Transmission Date: 20210114
  Serious: No
  Sender: FDA-Public Use
  Company Number: None

PATIENT
  Age: 77 Year
  Sex: Male
  Weight: 79.2 kg

DRUGS (4)
  1. VITAMIN D WITH K [Concomitant]
  2. ALLUPURINOL [Concomitant]
  3. LOSARTAN. [Concomitant]
     Active Substance: LOSARTAN
  4. FINASTERIDE 5 MG [Suspect]
     Active Substance: FINASTERIDE
     Indication: BENIGN PROSTATIC HYPERPLASIA
     Dosage: ?          QUANTITY:90 TABLET(S);?
     Route: 048
     Dates: start: 20201129, end: 20201208

REACTIONS (3)
  - Pollakiuria [None]
  - Urine flow decreased [None]
  - Dysuria [None]

NARRATIVE: CASE EVENT DATE: 20201205
